FAERS Safety Report 19587933 (Version 3)
Quarter: 2022Q2

REPORT INFORMATION
  Report Type: Spontaneous
  Country: JP (occurrence: JP)
  Receive Date: 20210721
  Receipt Date: 20220411
  Transmission Date: 20220721
  Serious: Yes (Hospitalization)
  Sender: FDA-Public Use
  Company Number: JP-BAYER-2021-174695

PATIENT
  Age: 73 Year
  Sex: Male
  Weight: 61.8 kg

DRUGS (16)
  1. ADEMPAS [Suspect]
     Active Substance: RIOCIGUAT
     Indication: Pulmonary hypertension
     Dosage: 1 MG, TID
     Route: 048
     Dates: start: 20210625, end: 20210628
  2. ADEMPAS [Suspect]
     Active Substance: RIOCIGUAT
     Indication: Pulmonary hypertension
     Dosage: 1 MG, TID
     Dates: start: 20210703, end: 20210705
  3. ADEMPAS [Suspect]
     Active Substance: RIOCIGUAT
     Indication: Pulmonary hypertension
     Dosage: DAILY DOSE 1.5 MG
     Dates: start: 202107, end: 20210718
  4. ADEMPAS [Suspect]
     Active Substance: RIOCIGUAT
     Indication: Pulmonary hypertension
     Dosage: DAILY DOSE 3 MG
     Dates: start: 20210719, end: 20210730
  5. IOPAMIDOL [Suspect]
     Active Substance: IOPAMIDOL
     Indication: Catheterisation cardiac
     Dosage: UNK
     Dates: start: 20210623
  6. IOPAMIDOL [Suspect]
     Active Substance: IOPAMIDOL
     Indication: Angiogram pulmonary
  7. OXYGEN [Concomitant]
     Active Substance: OXYGEN
  8. FUROSEMIDE [Concomitant]
     Active Substance: FUROSEMIDE
     Indication: Cardiac failure chronic
     Dosage: DAILY DOSE 40 MG
     Route: 048
     Dates: start: 20190627
  9. BISOPROLOL FUMARATE [Concomitant]
     Active Substance: BISOPROLOL FUMARATE
     Indication: Cardiac failure chronic
     Dosage: DAILY DOSE 2.5 MG
     Route: 048
     Dates: start: 20190515
  10. SAMSCA [Concomitant]
     Active Substance: TOLVAPTAN
     Indication: Cardiac failure chronic
     Dosage: DAILY DOSE 7.5 MG
     Route: 048
     Dates: start: 20210603, end: 20210730
  11. VALSARTAN [Concomitant]
     Active Substance: VALSARTAN
     Dosage: DAILY DOSE 40 MG
     Route: 048
     Dates: end: 20210630
  12. BEZAFIBRATE [Concomitant]
     Active Substance: BEZAFIBRATE
     Dosage: DAILY DOSE 400 MG
     Route: 048
  13. ELIQUIS [Concomitant]
     Active Substance: APIXABAN
     Indication: Pulmonary embolism
     Dosage: DAILY DOSE 10 MG
     Route: 048
     Dates: start: 20190627, end: 20210630
  14. EPLERENONE [Concomitant]
     Active Substance: EPLERENONE
     Dosage: DAILY DOSE 25 MG
     Route: 048
     Dates: start: 20210607, end: 20210630
  15. FEBUXOSTAT [Concomitant]
     Active Substance: FEBUXOSTAT
     Dosage: DAILY DOSE 40 MG
     Route: 048
  16. ROZEREM [Concomitant]
     Active Substance: RAMELTEON
     Dosage: UNK
     Dates: end: 20210730

REACTIONS (10)
  - Acute kidney injury [Recovered/Resolved]
  - Blood pressure decreased [Recovering/Resolving]
  - Eosinophil count increased [Recovered/Resolved]
  - White blood cell count increased [Recovered/Resolved]
  - Renal impairment [Recovered/Resolved]
  - Azotaemia [Recovered/Resolved]
  - Malaise [Recovered/Resolved]
  - Decreased appetite [Recovered/Resolved]
  - Weight increased [Recovered/Resolved]
  - Urine output decreased [Recovered/Resolved]

NARRATIVE: CASE EVENT DATE: 20210627
